FAERS Safety Report 25087145 (Version 1)
Quarter: 2025Q1

REPORT INFORMATION
  Report Type: Report from Study
  Country: US (occurrence: US)
  Receive Date: 20250318
  Receipt Date: 20250318
  Transmission Date: 20250408
  Serious: No
  Sender: TAKEDA
  Company Number: US-TAKEDA-2025TUS012024

PATIENT
  Sex: Female

DRUGS (3)
  1. LANADELUMAB [Suspect]
     Active Substance: LANADELUMAB
     Indication: Product used for unknown indication
     Dosage: 300 MILLIGRAM, Q2WEEKS
  2. KALBITOR [Suspect]
     Active Substance: ECALLANTIDE
     Indication: Hereditary angioedema
     Dates: start: 20240209, end: 20250217
  3. KALBITOR [Suspect]
     Active Substance: ECALLANTIDE

REACTIONS (3)
  - Drug hypersensitivity [Recovered/Resolved]
  - Product dose omission issue [Unknown]
  - Product use issue [Unknown]
